FAERS Safety Report 8133950-3 (Version None)
Quarter: 2012Q1

REPORT INFORMATION
  Report Type: 
  Country: None (occurrence: None)
  Receive Date: 20120213
  Receipt Date: 20120206
  Transmission Date: 20120608
  Serious: Yes (Other)
  Sender: FDA-Public Use
  Company Number: BR-ASTRAZENECA-2010SE06454

PATIENT
  Age: 47 Year
  Sex: Female

DRUGS (9)
  1. SEROQUEL [Suspect]
     Route: 048
     Dates: start: 20100201
  2. SEROQUEL [Suspect]
     Route: 048
     Dates: start: 20100201
  3. SEROQUEL [Suspect]
     Route: 048
     Dates: start: 20100201
  4. SEROQUEL [Suspect]
     Route: 048
     Dates: start: 20100201
  5. LIVOLON [Concomitant]
     Indication: MENOPAUSE
     Route: 048
  6. SEROQUEL [Suspect]
     Indication: ANXIETY DISORDER
     Route: 048
     Dates: end: 20100101
  7. SEROQUEL [Suspect]
     Indication: SCHIZOPHRENIA
     Route: 048
     Dates: end: 20100101
  8. SEROQUEL [Suspect]
     Route: 048
  9. SEROQUEL [Suspect]
     Route: 048

REACTIONS (5)
  - SALIVA DISCOLOURATION [None]
  - ABDOMINAL PAIN UPPER [None]
  - HYPOAESTHESIA ORAL [None]
  - PALPITATIONS [None]
  - ABDOMINAL DISTENSION [None]
